FAERS Safety Report 12670906 (Version 1)
Quarter: 2016Q3

REPORT INFORMATION
  Report Type: Spontaneous
  Country: US (occurrence: US)
  Receive Date: 20160822
  Receipt Date: 20160822
  Transmission Date: 20161109
  Serious: No
  Sender: FDA-Public Use
  Company Number: US-JAZZ-2016-US-006302

PATIENT
  Sex: Female

DRUGS (12)
  1. GLUCOSAMINE/CHONDROITIN [Concomitant]
  2. XYREM [Suspect]
     Active Substance: SODIUM OXYBATE
     Indication: NARCOLEPSY
     Dosage: 2.25 G, BID
     Route: 048
     Dates: start: 201408, end: 201408
  3. XYREM [Suspect]
     Active Substance: SODIUM OXYBATE
     Indication: CATAPLEXY
     Dosage: DOSE ADJUSTMENTS
     Route: 048
  4. WOMEN MULTI [Concomitant]
  5. XYREM [Suspect]
     Active Substance: SODIUM OXYBATE
     Dosage: 4.5 G, BID
     Route: 048
     Dates: start: 201503
  6. ZOFRAN [Concomitant]
     Active Substance: ONDANSETRON HYDROCHLORIDE
  7. CHOLESTYRAMINE. [Concomitant]
     Active Substance: CHOLESTYRAMINE
  8. PARAGARD T 380A [Concomitant]
     Active Substance: COPPER
  9. BORAGE OIL [Concomitant]
     Active Substance: BORAGE OIL
  10. TOPROL XL [Concomitant]
     Active Substance: METOPROLOL SUCCINATE
  11. TYLENOL EXTRA STRENGTH [Concomitant]
     Active Substance: ACETAMINOPHEN
  12. MODAFINIL. [Concomitant]
     Active Substance: MODAFINIL

REACTIONS (3)
  - Intervertebral disc degeneration [Unknown]
  - Vitamin D decreased [Unknown]
  - Spinal column stenosis [Unknown]
